FAERS Safety Report 8120931-9 (Version None)
Quarter: 2012Q1

REPORT INFORMATION
  Report Type: 
  Country: None (occurrence: None)
  Receive Date: 20120208
  Receipt Date: 20120202
  Transmission Date: 20120608
  Serious: Yes (Life-Threatening, Hospitalization, Other)
  Sender: FDA-Public Use
  Company Number: US-BAYER-2011-038406

PATIENT
  Age: 36 Year
  Sex: Female
  Weight: 138 kg

DRUGS (6)
  1. YASMIN [Suspect]
     Indication: CONTRACEPTION
     Dosage: UNK
     Dates: start: 20050101, end: 20060301
  2. ATENOLOL [Concomitant]
     Dosage: 50 MG, DAILY
     Route: 048
  3. CLARINEX [Concomitant]
     Dosage: 5 MG, DAILY
     Route: 048
  4. MAXZIDE [Concomitant]
     Dosage: 37.5/25 MG DAILY
     Route: 048
  5. YASMIN [Suspect]
     Indication: MENSTRUATION IRREGULAR
  6. ACIPHEX [Concomitant]
     Dosage: 20 MG, DAILY

REACTIONS (9)
  - CHOLECYSTITIS CHRONIC [None]
  - INJURY [None]
  - GALLBLADDER DISORDER [None]
  - ORGAN FAILURE [None]
  - PULMONARY EMBOLISM [None]
  - DEEP VEIN THROMBOSIS [None]
  - PAIN [None]
  - ABDOMINAL SYMPTOM [None]
  - ANXIETY [None]
